FAERS Safety Report 25332600 (Version 2)
Quarter: 2025Q2

REPORT INFORMATION
  Report Type: Spontaneous
  Country: US (occurrence: US)
  Receive Date: 20250519
  Receipt Date: 20250606
  Transmission Date: 20250716
  Serious: Yes (Death, Other)
  Sender: LANTHEUS MEDICAL IMAGING
  Company Number: US-LANTHEUS-LMI-2025-00664

PATIENT
  Sex: Male

DRUGS (1)
  1. DEFINITY [Suspect]
     Active Substance: PERFLUTREN
     Indication: Echocardiogram
     Route: 042
     Dates: start: 20250507, end: 20250507

REACTIONS (4)
  - Hepatic cirrhosis [Fatal]
  - Device malfunction [Recovered/Resolved]
  - Haemorrhage [Unknown]
  - Candida test positive [Unknown]

NARRATIVE: CASE EVENT DATE: 20250507
